FAERS Safety Report 4472576-X (Version None)
Quarter: 2004Q4

REPORT INFORMATION
  Report Type: 
  Country: None (occurrence: None)
  Receive Date: 20041013
  Receipt Date: 20041004
  Transmission Date: 20050328
  Serious: Yes (Hospitalization, Other)
  Sender: FDA-Public Use
  Company Number: US-JNJFOC-20040505986

PATIENT
  Sex: Female
  Weight: 61.24 kg

DRUGS (2)
  1. REMICADE [Suspect]
     Indication: RHEUMATOID ARTHRITIS
     Route: 042
  2. METHOTREXATE [Concomitant]
     Indication: RHEUMATOID ARTHRITIS

REACTIONS (13)
  - AORTIC VALVE SCLEROSIS [None]
  - ATELECTASIS [None]
  - CARDIOMEGALY [None]
  - ELECTROCARDIOGRAM ST SEGMENT ELEVATION [None]
  - FIBRIN D DIMER INCREASED [None]
  - MITRAL VALVE INCOMPETENCE [None]
  - PERICARDITIS [None]
  - PLEURAL EFFUSION [None]
  - PNEUMONIA [None]
  - PULMONARY CONGESTION [None]
  - TOTAL LUNG CAPACITY DECREASED [None]
  - TRICUSPID VALVE INCOMPETENCE [None]
  - VIRAL PERICARDITIS [None]
